FAERS Safety Report 12657942 (Version 1)
Quarter: 2016Q3

REPORT INFORMATION
  Report Type: Report from Study
  Country: BR (occurrence: BR)
  Receive Date: 20160816
  Receipt Date: 20160816
  Transmission Date: 20161109
  Serious: Yes (Death, Other)
  Sender: FDA-Public Use
  Company Number: PHHY2015BR124186

PATIENT
  Sex: Male
  Weight: 62 kg

DRUGS (4)
  1. EXJADE [Suspect]
     Active Substance: DEFERASIROX
     Dosage: 15 MG/KG, QD (2 TABLETS OF 500 MG IN FASTING CONDITIONS)
     Route: 048
  2. EXJADE [Suspect]
     Active Substance: DEFERASIROX
     Indication: MYELODYSPLASTIC SYNDROME
     Dosage: 25 MG/KG, QD (3 DF OF 500 ON SATURDAYS AND SUNDAYS AND 15 MG/KG FROM MONDAY TO FRIDAY)
     Route: 048
     Dates: start: 2014
  3. ALFAEPOETINA [Concomitant]
     Indication: PRODUCT USED FOR UNKNOWN INDICATION
     Route: 065
  4. EXJADE [Suspect]
     Active Substance: DEFERASIROX
     Dosage: 25 MG/KG, QD (3 DF OF 500 MG FROM MONDAY TO FRIDAY AND 2 DF OF 500 MG ON SATURDAYS AND SUNDAYS)
     Route: 048
     Dates: start: 20160712

REACTIONS (5)
  - Serum ferritin increased [Unknown]
  - Dyspnoea [Unknown]
  - Death [Fatal]
  - Malaise [Unknown]
  - Fatigue [Unknown]
